FAERS Safety Report 5937773-2 (Version None)
Quarter: 2008Q4

REPORT INFORMATION
  Report Type: 
  Country: None (occurrence: None)
  Receive Date: 20081031
  Receipt Date: 20081022
  Transmission Date: 20090506
  Serious: Yes (Other)
  Sender: FDA-Public Use
  Company Number: FR-ABBOTT-08P-056-0470480-00

PATIENT
  Sex: Male

DRUGS (5)
  1. MICROPAKINE GRANULE [Suspect]
     Indication: EPILEPSY
     Route: 048
     Dates: start: 20071201, end: 20080101
  2. MICROPAKINE GRANULE [Suspect]
     Route: 048
     Dates: start: 20080101, end: 20080731
  3. MICROPAKINE GRANULE [Suspect]
     Route: 048
     Dates: start: 20080801
  4. VIGABATRIN [Concomitant]
     Indication: EPILEPSY
     Route: 048
  5. TOPIRAMATE [Concomitant]
     Indication: EPILEPSY
     Route: 048

REACTIONS (3)
  - CONVULSION [None]
  - EPILEPSY [None]
  - MEDICATION ERROR [None]
